FAERS Safety Report 7650398-6 (Version None)
Quarter: 2011Q3

REPORT INFORMATION
  Report Type: 
  Country: None (occurrence: None)
  Receive Date: 20110726
  Receipt Date: 20100625
  Transmission Date: 20111222
  Serious: Yes (Hospitalization)
  Sender: FDA-Public Use
  Company Number: 8045622

PATIENT
  Sex: Female
  Weight: 72.5 kg

DRUGS (3)
  1. NEBIVOLOL HCL [Concomitant]
  2. XYZAL [Suspect]
     Indication: HYPERSENSITIVITY
     Dosage: (5 MG QD, AT BEDTIME ORAL)
     Route: 048
     Dates: start: 20090420, end: 20090421
  3. VYTORIN [Concomitant]

REACTIONS (5)
  - ANXIETY [None]
  - PANIC ATTACK [None]
  - INSOMNIA [None]
  - HALLUCINATION [None]
  - HALLUCINATION, AUDITORY [None]
